FAERS Safety Report 5377792-0 (Version None)
Quarter: 2007Q3

REPORT INFORMATION
  Report Type: 
  Country: None (occurrence: None)
  Receive Date: 20070703
  Receipt Date: 20070625
  Transmission Date: 20080115
  Serious: Yes (Other)
  Sender: FDA-Public Use
  Company Number: US-PFIZER INC-2007052399

PATIENT
  Sex: Female
  Weight: 66.2 kg

DRUGS (2)
  1. LYRICA [Suspect]
     Indication: SCIATIC NERVE NEUROPATHY
     Dates: start: 20070301, end: 20070501
  2. LYRICA [Suspect]
     Indication: BURNING SENSATION

REACTIONS (7)
  - ABDOMINAL DISTENSION [None]
  - BREAST SWELLING [None]
  - NAUSEA [None]
  - PAIN [None]
  - SOMNOLENCE [None]
  - VISION BLURRED [None]
  - VISUAL DISTURBANCE [None]
